FAERS Safety Report 9654454 (Version 1)
Quarter: 2013Q4

REPORT INFORMATION
  Report Type: Spontaneous
  Country: US (occurrence: US)
  Receive Date: 20131029
  Receipt Date: 20131029
  Transmission Date: 20140711
  Serious: Yes (Other)
  Sender: FDA-Public Use
  Company Number: CHPA2013US016253

PATIENT
  Age: 80 Year
  Sex: Female

DRUGS (1)
  1. 4 WAY MENTHOLATED NASAL SPRAY [Suspect]
     Indication: SINUS DISORDER
     Dosage: UNK, UNK
     Route: 045

REACTIONS (2)
  - Bronchitis [Not Recovered/Not Resolved]
  - Sinusitis [Not Recovered/Not Resolved]
